FAERS Safety Report 8107622 (Version 2)
Quarter: 2015Q4

REPORT INFORMATION
  Report Type: Spontaneous
  Country: AT (occurrence: AT)
  Receive Date: 20110826
  Receipt Date: 20151008
  Transmission Date: 20160305
  Serious: No
  Sender: FDA-Public Use
  Company Number: AT-BIOGENIDEC-2011BI030970

PATIENT
  Sex: Male

DRUGS (1)
  1. TYSABRI [Suspect]
     Active Substance: NATALIZUMAB
     Indication: MULTIPLE SCLEROSIS
     Route: 042

REACTIONS (1)
  - Multiple sclerosis relapse [Unknown]
